FAERS Safety Report 15770471 (Version 1)
Quarter: 2018Q4

REPORT INFORMATION
  Report Type: Spontaneous
  Country: US (occurrence: US)
  Receive Date: 20181228
  Receipt Date: 20181228
  Transmission Date: 20190205
  Serious: Yes (Hospitalization)
  Sender: FDA-Public Use
  Company Number: US-PHARMING-PHAUS2018000847

PATIENT

DRUGS (9)
  1. SODIUM CHLORIDE. [Concomitant]
     Active Substance: SODIUM CHLORIDE
  2. ZOFRAN [Concomitant]
     Active Substance: ONDANSETRON HYDROCHLORIDE
  3. RUCONEST [Suspect]
     Active Substance: HUMAN C1-ESTERASE INHIBITOR
     Indication: HEREDITARY ANGIOEDEMA
     Dosage: 4200 IU, AS DIRECTED
     Route: 042
     Dates: start: 20171004
  4. STERILE WATER [Concomitant]
     Active Substance: WATER
  5. EPINEPHRINE. [Concomitant]
     Active Substance: EPINEPHRINE
  6. WELLBUTRIN [Concomitant]
     Active Substance: BUPROPION HYDROCHLORIDE
  7. DONNATAB [Concomitant]
     Active Substance: ATROPINE SULFATE\HYOSCYAMINE SULFATE\SCOPOLAMINE HYDROBROMIDE
  8. NIFEDIPINE. [Concomitant]
     Active Substance: NIFEDIPINE
  9. KLONOPIN [Concomitant]
     Active Substance: CLONAZEPAM

REACTIONS (4)
  - Hepatic enzyme increased [Unknown]
  - Post procedural haemorrhage [Unknown]
  - Breast operation [Recovered/Resolved]
  - Breast procedural complication [Unknown]

NARRATIVE: CASE EVENT DATE: 2018
